FAERS Safety Report 4288769-0 (Version None)
Quarter: 2004Q1

REPORT INFORMATION
  Report Type: 
  Country: None (occurrence: None)
  Receive Date: 20040204
  Receipt Date: 20040120
  Transmission Date: 20041129
  Serious: Yes (Life-Threatening, Hospitalization)
  Sender: FDA-Public Use
  Company Number: 22881 (0)

PATIENT
  Age: 81 Year
  Sex: Female

DRUGS (1)
  1. APOCARD (ORAL) (FLECAINIDE ACETATE) (FLECAINIDE ACETATE) [Suspect]
     Indication: WOLFF-PARKINSON-WHITE SYNDROME
     Dosage: 200 MG
     Route: 048
     Dates: start: 20031006, end: 20031007

REACTIONS (3)
  - SHOCK [None]
  - SYNCOPE [None]
  - VENTRICULAR TACHYCARDIA [None]
